FAERS Safety Report 7762432-3 (Version None)
Quarter: 2011Q3

REPORT INFORMATION
  Report Type: 
  Country: None (occurrence: None)
  Receive Date: 20110920
  Receipt Date: 20110913
  Transmission Date: 20111222
  Serious: Yes (Other)
  Sender: FDA-Public Use
  Company Number: US-ROCHE-803383

PATIENT
  Age: 88 Year
  Sex: Female

DRUGS (1)
  1. AVASTIN [Suspect]
     Dosage: 06 WEEKS AGO
     Route: 031

REACTIONS (3)
  - DEHYDRATION [None]
  - AGEUSIA [None]
  - MALNUTRITION [None]
